FAERS Safety Report 17235287 (Version 1)
Quarter: 2020Q1

REPORT INFORMATION
  Report Type: Spontaneous
  Country: US (occurrence: US)
  Receive Date: 20200103
  Receipt Date: 20200103
  Transmission Date: 20200409
  Serious: Yes (Other)
  Sender: FDA-Public Use
  Company Number: None

PATIENT
  Age: 59 Year
  Sex: Female
  Weight: 63 kg

DRUGS (15)
  1. HUMALOG INSULIN VIA PUMP [Concomitant]
  2. COENZYME Q10 [Concomitant]
     Active Substance: UBIDECARENONE
  3. DICLOFENAC [Concomitant]
     Active Substance: DICLOFENAC
  4. METHOTREXATE. [Concomitant]
     Active Substance: METHOTREXATE
  5. CALCIUM [Concomitant]
     Active Substance: CALCIUM
  6. ORENCIA [Suspect]
     Active Substance: ABATACEPT
     Indication: RHEUMATOID ARTHRITIS
     Dosage: ?          QUANTITY:1 INJECTION(S);OTHER FREQUENCY:WEEKLY;?
     Route: 058
  7. FISH OIL [Concomitant]
     Active Substance: FISH OIL
  8. ATORVASTATIN [Concomitant]
     Active Substance: ATORVASTATIN
  9. CLONAZEPAM. [Concomitant]
     Active Substance: CLONAZEPAM
  10. LEUCOVORIN. [Concomitant]
     Active Substance: LEUCOVORIN
  11. MULTI VITAMIN [Concomitant]
     Active Substance: VITAMINS
  12. CRANBERRY EXTRACT [Concomitant]
     Active Substance: CRANBERRY JUICE
  13. BENADRYL [Concomitant]
     Active Substance: DIPHENHYDRAMINE HYDROCHLORIDE
  14. VITAMIN E [Concomitant]
     Active Substance: .ALPHA.-TOCOPHEROL
  15. ASPIRIN (LOW DOSE) [Concomitant]

REACTIONS (3)
  - Erythema [None]
  - Dry skin [None]
  - Skin exfoliation [None]

NARRATIVE: CASE EVENT DATE: 20191101
